FAERS Safety Report 10176908 (Version 1)
Quarter: 2014Q2

REPORT INFORMATION
  Report Type: Spontaneous
  Country: US (occurrence: US)
  Receive Date: 20140516
  Receipt Date: 20140516
  Transmission Date: 20141212
  Serious: No
  Sender: FDA-Public Use
  Company Number: US-ROXANE LABORATORIES, INC.-2014-RO-00763RO

PATIENT
  Sex: Female

DRUGS (2)
  1. FAMCICLOVIR [Suspect]
     Indication: HERPES ZOSTER
     Dosage: 1500 MG
     Route: 048
     Dates: start: 20140428, end: 20140502
  2. SULFASALAZINE ER [Concomitant]
     Dosage: 4 G
     Route: 065

REACTIONS (5)
  - Sensory disturbance [Not Recovered/Not Resolved]
  - Vision blurred [Not Recovered/Not Resolved]
  - Photosensitivity reaction [Not Recovered/Not Resolved]
  - Balance disorder [Not Recovered/Not Resolved]
  - Dysgeusia [Not Recovered/Not Resolved]
